FAERS Safety Report 20950496 (Version 1)
Quarter: 2022Q2

REPORT INFORMATION
  Report Type: Spontaneous
  Country: US (occurrence: US)
  Receive Date: 20220613
  Receipt Date: 20220613
  Transmission Date: 20220721
  Serious: Yes (Other)
  Sender: FDA-Public Use
  Company Number: US-drreddys-LIT/USA/22/0151054

PATIENT
  Age: 77 Year
  Sex: Male

DRUGS (10)
  1. GALANTAMINE HYDROBROMIDE [Suspect]
     Active Substance: GALANTAMINE HYDROBROMIDE
     Indication: Dementia with Lewy bodies
  2. QUETIAPINE FUMARATE [Suspect]
     Active Substance: QUETIAPINE FUMARATE
     Indication: Dementia with Lewy bodies
  3. OLANZAPINE [Suspect]
     Active Substance: OLANZAPINE
     Indication: Dementia with Lewy bodies
  4. RISPERIDONE [Suspect]
     Active Substance: RISPERIDONE
     Indication: Dementia with Lewy bodies
  5. ZIPRASIDONE [Suspect]
     Active Substance: ZIPRASIDONE
     Indication: Dementia with Lewy bodies
  6. VALPROATE SODIUM [Suspect]
     Active Substance: VALPROATE SODIUM
     Indication: Dementia with Lewy bodies
  7. TEMAZEPAM [Suspect]
     Active Substance: TEMAZEPAM
     Indication: Dementia with Lewy bodies
  8. OXCARBAZEPINE [Suspect]
     Active Substance: OXCARBAZEPINE
     Indication: Dementia with Lewy bodies
  9. DOXEPIN [Suspect]
     Active Substance: DOXEPIN
     Indication: Dementia with Lewy bodies
  10. GABAPENTIN [Suspect]
     Active Substance: GABAPENTIN
     Indication: Dementia with Lewy bodies

REACTIONS (1)
  - Treatment failure [Unknown]
